FAERS Safety Report 6147355-8 (Version None)
Quarter: 2009Q2

REPORT INFORMATION
  Report Type: 
  Country: None (occurrence: None)
  Receive Date: 20090408
  Receipt Date: 20090403
  Transmission Date: 20091009
  Serious: Yes (Death, Life-Threatening, Hospitalization, Other)
  Sender: FDA-Public Use
  Company Number: PHHY2009BR12873

PATIENT
  Sex: Male

DRUGS (6)
  1. DIOVAN HCT [Suspect]
     Indication: HYPERTENSION
     Dosage: 320/12.5MG, QD
     Route: 048
  2. SELOKEN [Concomitant]
     Indication: HYPERTENSION
     Dosage: UNK
  3. ENAPLUS (ENALAPRIL MALEATE/HYDROCHLOROTHIAZIDE) [Concomitant]
  4. AAS [Concomitant]
  5. VALIUM [Concomitant]
  6. RITALIN [Concomitant]
     Indication: SLEEP DISORDER

REACTIONS (10)
  - ANGIOPATHY [None]
  - CARDIAC ARREST [None]
  - CEREBROVASCULAR ACCIDENT [None]
  - COMA [None]
  - DIABETES MELLITUS [None]
  - ELECTROLYTE IMBALANCE [None]
  - EMPHYSEMA [None]
  - HYPEROSMOLAR STATE [None]
  - LUNG INJURY [None]
  - NERVOUS SYSTEM DISORDER [None]
